FAERS Safety Report 8458972-4 (Version None)
Quarter: 2012Q2

REPORT INFORMATION
  Report Type: 
  Country: None (occurrence: None)
  Receive Date: 20120622
  Receipt Date: 20120613
  Transmission Date: 20120825
  Serious: Yes (Other)
  Sender: FDA-Public Use
  Company Number: DK-ROCHE-1078373

PATIENT
  Age: 24 Year
  Sex: Male

DRUGS (1)
  1. LARIAM [Suspect]
     Indication: MALARIA PROPHYLAXIS

REACTIONS (7)
  - LEARNING DISABILITY [None]
  - DEPRESSION [None]
  - CONVULSION [None]
  - ILL-DEFINED DISORDER [None]
  - MEMORY IMPAIRMENT [None]
  - EPILEPSY [None]
  - MALAISE [None]
